FAERS Safety Report 9017486 (Version 1)
Quarter: 2013Q1

REPORT INFORMATION
  Report Type: Spontaneous
  Country: US (occurrence: US)
  Receive Date: 20130117
  Receipt Date: 20130117
  Transmission Date: 20140127
  Serious: No
  Sender: FDA-Public Use
  Company Number: US-B.I. PHARMACEUTICALS,INC./RIDGEFIELD-2013-BI-01214BP

PATIENT
  Sex: Female

DRUGS (6)
  1. PRADAXA [Suspect]
     Indication: ATRIAL FIBRILLATION
     Dosage: 300 MG
     Route: 048
     Dates: start: 201211
  2. LISINOPRIL [Concomitant]
     Route: 048
  3. ATENOLOL [Concomitant]
     Route: 048
  4. LASIX [Concomitant]
     Route: 048
  5. AMIODARONE [Concomitant]
     Route: 048
  6. POTASSIUM [Concomitant]
     Route: 048

REACTIONS (1)
  - Flatulence [Not Recovered/Not Resolved]
